FAERS Safety Report 23602451 (Version 1)
Quarter: 2024Q1

REPORT INFORMATION
  Report Type: Report from Study
  Country: CN (occurrence: CN)
  Receive Date: 20240306
  Receipt Date: 20240306
  Transmission Date: 20240409
  Serious: Yes (Hospitalization)
  Sender: FDA-Public Use
  Company Number: CN-ELI_LILLY_AND_COMPANY-CN202402015818

PATIENT
  Age: 52 Year
  Sex: Male
  Weight: 55 kg

DRUGS (5)
  1. CYRAMZA [Suspect]
     Active Substance: RAMUCIRUMAB
     Indication: Gastric cancer
     Dosage: UNK UNK, UNKNOWN
     Route: 041
     Dates: start: 20240103
  2. PACLITAXEL [Concomitant]
     Active Substance: PACLITAXEL
     Indication: Gastric cancer
     Dosage: UNK UNK, UNKNOWN
     Route: 065
     Dates: start: 20240103
  3. IRINOTECAN [Concomitant]
     Active Substance: IRINOTECAN
     Indication: Gastric cancer
     Dosage: UNK UNK, UNKNOWN
     Route: 065
     Dates: start: 20240103
  4. ENSURE [Concomitant]
     Active Substance: AMINO ACIDS\DEXTROSE\ELECTROLYTES NOS\SOYBEAN OIL\VITAMINS
     Indication: Product used for unknown indication
     Dosage: 60 ML, EVERY HOUR (INFUSED THROUGH FEEDING TUBE)
     Route: 050
  5. WATER [Concomitant]
     Active Substance: WATER
     Indication: Product used for unknown indication
     Dosage: 50 ML, EVERY 4 HRS

REACTIONS (4)
  - Bowel movement irregularity [Unknown]
  - Abdominal distension [Unknown]
  - Abdominal pain [Unknown]
  - Blood pressure systolic increased [Unknown]

NARRATIVE: CASE EVENT DATE: 20240101
